FAERS Safety Report 6873067-9 (Version None)
Quarter: 2010Q3

REPORT INFORMATION
  Report Type: 
  Country: None (occurrence: None)
  Receive Date: 20100723
  Receipt Date: 20100716
  Transmission Date: 20110219
  Serious: Yes (Other)
  Sender: FDA-Public Use
  Company Number: US-AMGEN-QUU425041

PATIENT
  Sex: Male

DRUGS (2)
  1. NPLATE [Suspect]
     Indication: IDIOPATHIC THROMBOCYTOPENIC PURPURA
     Dates: start: 20090115
  2. CORTICOSTEROIDS [Concomitant]
     Dates: start: 20060101, end: 20090101

REACTIONS (3)
  - EMBOLISM ARTERIAL [None]
  - MYOCARDIAL INFARCTION [None]
  - THROMBOSIS [None]
